FAERS Safety Report 8792020 (Version 1)
Quarter: 2012Q4

REPORT INFORMATION
  Report Type: 
  Country: US (occurrence: US)
  Receive Date: 20120918
  Receipt Date: 20120918
  Transmission Date: 20130627
  Serious: Yes (Other)
  Sender: FDA-Public Use
  Company Number: US-PFIZER INC-2012230058

PATIENT
  Age: 82 Year
  Sex: Female
  Weight: 68.03 kg

DRUGS (2)
  1. ZOLOFT [Suspect]
     Indication: DEPRESSION
     Dosage: 50 mg, 1x/day
     Route: 048
  2. ZOLOFT [Suspect]
     Dosage: 100 mg, 1x/day
     Route: 048
     Dates: end: 20120916

REACTIONS (5)
  - Body height decreased [Unknown]
  - Cardiac disorder [Unknown]
  - Hyperhidrosis [Not Recovered/Not Resolved]
  - Lethargy [Not Recovered/Not Resolved]
  - Fatigue [Not Recovered/Not Resolved]
